FAERS Safety Report 25917345 (Version 1)
Quarter: 2025Q4

REPORT INFORMATION
  Report Type: Report from Study
  Country: EU (occurrence: EU)
  Receive Date: 20251014
  Receipt Date: 20251014
  Transmission Date: 20260118
  Serious: Yes (Hospitalization)
  Sender: ABBVIE
  Company Number: EU-ABBVIE-6494031

PATIENT
  Sex: Male

DRUGS (2)
  1. CARBIDOPA\LEVODOPA [Suspect]
     Active Substance: CARBIDOPA\LEVODOPA
     Indication: Parkinson^s disease
     Dosage: 24H: MD 4.0 ML; CRT 1.9 ML/H; CRN 1.9 ML /H; ED: NO ML LL1
     Route: 050
  2. CARBIDOPA\LEVODOPA [Suspect]
     Active Substance: CARBIDOPA\LEVODOPA
     Dosage: 24H: MD 4.0 ML; CRT 1.9 ML/H; CRN 1.9 ML /H; ED: NO ML LL1
     Route: 050
     Dates: start: 20240628

REACTIONS (10)
  - Parkinson^s disease [Unknown]
  - Device issue [Unknown]
  - Enteral nutrition [Not Recovered/Not Resolved]
  - Device leakage [Unknown]
  - Reduced facial expression [Unknown]
  - Quadriparesis [Unknown]
  - Extensor plantar response [Unknown]
  - Mobility decreased [Unknown]
  - Bedridden [Unknown]
  - Dystonia [Unknown]
